FAERS Safety Report 4344553-0 (Version None)
Quarter: 2004Q2

REPORT INFORMATION
  Report Type: 
  Country: None (occurrence: None)
  Receive Date: 20040422
  Receipt Date: 20030711
  Transmission Date: 20050107
  Serious: Yes (Death, Hospitalization)
  Sender: FDA-Public Use
  Company Number: US-MERCK-0307USA01551

PATIENT
  Age: 70 Year
  Sex: Female

DRUGS (6)
  1. [THERAPY UNSPECIFIED] [Concomitant]
     Indication: PARKINSON'S DISEASE
     Route: 065
  2. [THERAPY UNSPECIFIED] [Concomitant]
     Indication: BLOOD PRESSURE
     Route: 065
  3. ZETIA [Suspect]
     Indication: BLOOD CHOLESTEROL INCREASED
     Route: 048
     Dates: start: 20030201
  4. TRICOR [Concomitant]
     Route: 065
     Dates: start: 20030601
  5. LOPID [Concomitant]
     Route: 065
     Dates: start: 20030201, end: 20030601
  6. PRAVACHOL [Concomitant]
     Route: 065
     Dates: start: 20030201

REACTIONS (5)
  - BLOOD TRIGLYCERIDES INCREASED [None]
  - DEATH [None]
  - HEPATIC FAILURE [None]
  - HEPATOTOXICITY [None]
  - WEIGHT INCREASED [None]
